FAERS Safety Report 16128972 (Version 1)
Quarter: 2019Q1

REPORT INFORMATION
  Report Type: Spontaneous
  Country: US (occurrence: US)
  Receive Date: 20190225
  Receipt Date: 20190225
  Transmission Date: 20190418
  Serious: No
  Sender: FDA-Public Use
  Company Number: None

PATIENT
  Age: 52 Year
  Sex: Male

DRUGS (1)
  1. BIKTARVY [Suspect]
     Active Substance: BICTEGRAVIR SODIUM\EMTRICITABINE\TENOFOVIR ALAFENAMIDE FUMARATE
     Dates: start: 201901

REACTIONS (4)
  - Fatigue [None]
  - Loss of personal independence in daily activities [None]
  - Flatulence [None]
  - Insomnia [None]

NARRATIVE: CASE EVENT DATE: 20190225
